FAERS Safety Report 10705331 (Version 1)
Quarter: 2015Q1

REPORT INFORMATION
  Report Type: Spontaneous
  Country: US (occurrence: US)
  Receive Date: 20150112
  Receipt Date: 20150112
  Transmission Date: 20150721
  Serious: Yes (Other)
  Sender: FDA-Public Use
  Company Number: US-SHIRE-US201409465

PATIENT
  Sex: Female

DRUGS (1)
  1. AMPHETAMINE SALTS [Suspect]
     Active Substance: AMPHETAMINE ASPARTATE\AMPHETAMINE SULFATE\DEXTROAMPHETAMINE SACCHARATE\DEXTROAMPHETAMINE SULFATE
     Indication: ATTENTION DEFICIT/HYPERACTIVITY DISORDER
     Dosage: 20 MG, UNKNOWN
     Route: 048

REACTIONS (29)
  - Depression [Unknown]
  - Flatulence [Unknown]
  - Coordination abnormal [Unknown]
  - Body temperature increased [Unknown]
  - Cervicogenic headache [Unknown]
  - Paraesthesia [Unknown]
  - Somnolence [Unknown]
  - Irritability [Unknown]
  - Disturbance in attention [Unknown]
  - Feeling of despair [Unknown]
  - Nausea [Unknown]
  - Headache [Unknown]
  - Vertigo [Unknown]
  - Tinnitus [Unknown]
  - Diarrhoea [Unknown]
  - Fatigue [Unknown]
  - Crying [Unknown]
  - Listless [Unknown]
  - Frustration [Unknown]
  - Aphasia [Unknown]
  - Hyperhidrosis [Unknown]
  - Memory impairment [Unknown]
  - Tremor [Unknown]
  - Drug ineffective [Unknown]
  - Hallucination, auditory [Unknown]
  - Confusional state [Unknown]
  - Anxiety [Unknown]
  - Eye pain [Unknown]
  - Sleep disorder [Unknown]

NARRATIVE: CASE EVENT DATE: 201410
